FAERS Safety Report 5955337-1 (Version None)
Quarter: 2008Q4

REPORT INFORMATION
  Report Type: 
  Country: None (occurrence: None)
  Receive Date: 20081031
  Receipt Date: 20080715
  Transmission Date: 20090506
  Serious: No
  Sender: FDA-Public Use
  Company Number: 2008PV036172

PATIENT
  Age: 72 Year
  Sex: Female
  Weight: 97.0698 kg

DRUGS (3)
  1. SYMLIN [Suspect]
     Indication: TYPE 2 DIABETES MELLITUS
     Dosage: 120 MCG; TID; SC
     Route: 058
  2. LANTUS [Concomitant]
  3. METFORMIN HCL [Concomitant]

REACTIONS (3)
  - NAUSEA [None]
  - VISUAL IMPAIRMENT [None]
  - WEIGHT INCREASED [None]
